FAERS Safety Report 12924750 (Version 2)
Quarter: 2017Q1

REPORT INFORMATION
  Report Type: Report from Study
  Country: BR (occurrence: BR)
  Receive Date: 20161109
  Receipt Date: 20170127
  Transmission Date: 20170428
  Serious: Yes (Hospitalization)
  Sender: FDA-Public Use
  Company Number: PHHY2016BR151553

PATIENT
  Sex: Male

DRUGS (1)
  1. EXJADE [Suspect]
     Active Substance: DEFERASIROX
     Indication: CHRONIC LEUKAEMIA
     Dosage: 500 MG, QD
     Route: 048
     Dates: start: 20161003

REACTIONS (7)
  - Urinary tract infection [Unknown]
  - Weight decreased [Unknown]
  - Urinary tract pain [Unknown]
  - Dysuria [Unknown]
  - Respiratory tract infection [Unknown]
  - Renal failure [Unknown]
  - Volume blood decreased [Recovering/Resolving]
